FAERS Safety Report 17376931 (Version 1)
Quarter: 2020Q1

REPORT INFORMATION
  Report Type: Spontaneous
  Country: US (occurrence: US)
  Receive Date: 20200205
  Receipt Date: 20200205
  Transmission Date: 20200409
  Serious: Yes (Other)
  Sender: FDA-Public Use
  Company Number: None

PATIENT
  Age: 33 Year
  Sex: Female
  Weight: 72 kg

DRUGS (2)
  1. ALBUTERAL [Concomitant]
     Active Substance: ALBUTEROL
  2. EMGALITY [Suspect]
     Active Substance: GALCANEZUMAB-GNLM
     Indication: MIGRAINE
     Dosage: ?          OTHER ROUTE:INJECTION INTO STOMACH?
     Dates: start: 20191203, end: 20200128

REACTIONS (3)
  - Rash [None]
  - Urticaria [None]
  - Arthropod bite [None]

NARRATIVE: CASE EVENT DATE: 20200125
